FAERS Safety Report 6725619-4 (Version None)
Quarter: 2010Q2

REPORT INFORMATION
  Report Type: 
  Country: None (occurrence: None)
  Receive Date: 20100514
  Receipt Date: 20100506
  Transmission Date: 20101027
  Serious: Yes (Death)
  Sender: FDA-Public Use
  Company Number: US-JNJFOC-20100503790

PATIENT
  Age: 46 Year
  Sex: Female

DRUGS (8)
  1. NUCYNTA [Suspect]
     Indication: RADICULOPATHY
     Dosage: 4 TIMES A DAY
     Route: 048
  2. NUCYNTA [Suspect]
     Dosage: 4 TIMES A DAY
     Route: 048
  3. NUCYNTA [Suspect]
     Indication: INTERVERTEBRAL DISC DISORDER
     Dosage: 4 TIMES A DAY
     Route: 048
  4. NUCYNTA [Suspect]
     Dosage: 4 TIMES A DAY
     Route: 048
  5. GABAPENTIN [Concomitant]
     Indication: DRUG USE FOR UNKNOWN INDICATION
     Dosage: 3 TIMES A DAY
     Route: 048
  6. TRAZODONE HCL [Concomitant]
     Indication: DRUG USE FOR UNKNOWN INDICATION
     Dosage: 3 TIMES A DAY
     Route: 048
  7. XANAX [Concomitant]
     Indication: DRUG USE FOR UNKNOWN INDICATION
     Dosage: DAILY
     Route: 048
  8. AMBIEN CR [Concomitant]
     Indication: DRUG USE FOR UNKNOWN INDICATION
     Dosage: DAILY
     Route: 048

REACTIONS (1)
  - DEATH [None]
